FAERS Safety Report 12372504 (Version 1)
Quarter: 2016Q2

REPORT INFORMATION
  Report Type: Spontaneous
  Country: SI (occurrence: SI)
  Receive Date: 20160516
  Receipt Date: 20160516
  Transmission Date: 20160815
  Serious: Yes (Hospitalization)
  Sender: FDA-Public Use
  Company Number: SI-TEVA-657797ISR

PATIENT
  Age: 72 Year
  Sex: Male

DRUGS (8)
  1. EPOSIN 20 MG/ML [Suspect]
     Active Substance: ETOPOSIDE
     Indication: SMALL CELL LUNG CANCER
     Dosage: CONCENTRATE FOR SOLUTION FOR INFUSION
     Route: 042
     Dates: start: 20160407, end: 20160407
  2. NOLPAZA 40MG [Concomitant]
     Dosage: 1 DOSAGE FORMS DAILY; IN THE MORNINGS
  3. ENAP [Concomitant]
     Active Substance: ENALAPRIL
     Dosage: 10 MG IN THE MORNING AND 20 MG IN THE EVENING
  4. DEXAMETHASONE. [Concomitant]
     Active Substance: DEXAMETHASONE
     Route: 042
  5. CODEINE [Concomitant]
     Active Substance: CODEINE
     Dosage: 3X1 TBL. AS NECESSARY
     Route: 048
  6. ANALGIN [Concomitant]
     Active Substance: METAMIZOLE SODIUM
  7. ZALDIAR [Concomitant]
     Active Substance: ACETAMINOPHEN\TRAMADOL HYDROCHLORIDE
  8. GRANISETRON [Concomitant]
     Active Substance: GRANISETRON
     Route: 042

REACTIONS (5)
  - Back pain [Recovered/Resolved]
  - Erythema [Recovered/Resolved]
  - Hypertension [Recovered/Resolved]
  - Oxygen saturation decreased [Recovered/Resolved]
  - Dyspnoea [Recovered/Resolved]

NARRATIVE: CASE EVENT DATE: 20160407
